FAERS Safety Report 12995502 (Version 1)
Quarter: 2016Q4

REPORT INFORMATION
  Report Type: Report from Study
  Country: BR (occurrence: BR)
  Receive Date: 20161202
  Receipt Date: 20161202
  Transmission Date: 20170207
  Serious: Yes (Other)
  Sender: FDA-Public Use
  Company Number: BR-JNJFOC-20161200561

PATIENT
  Age: 45 Year
  Sex: Female
  Weight: 68 kg

DRUGS (4)
  1. SIMPONI [Suspect]
     Active Substance: GOLIMUMAB
     Indication: RHEUMATOID ARTHRITIS
     Route: 058
     Dates: start: 20160907
  2. SIMPONI [Suspect]
     Active Substance: GOLIMUMAB
     Indication: RHEUMATOID ARTHRITIS
     Route: 058
     Dates: start: 20160524
  3. METHOTREXATE. [Concomitant]
     Active Substance: METHOTREXATE
     Route: 065
  4. LORATADINE. [Concomitant]
     Active Substance: LORATADINE
     Route: 065

REACTIONS (4)
  - Pneumonia [Unknown]
  - Pharyngeal oedema [Unknown]
  - Vulvovaginal candidiasis [Unknown]
  - Acne [Unknown]

NARRATIVE: CASE EVENT DATE: 201608
